FAERS Safety Report 12411737 (Version 5)
Quarter: 2016Q3

REPORT INFORMATION
  Report Type: Spontaneous
  Country: JP (occurrence: JP)
  Receive Date: 20160527
  Receipt Date: 20160905
  Transmission Date: 20161109
  Serious: Yes (Life-Threatening, Hospitalization, Other)
  Sender: FDA-Public Use
  Company Number: JP-IPSEN BIOPHARMACEUTICALS, INC.-2016-04557

PATIENT
  Age: 24 Year
  Sex: Male

DRUGS (5)
  1. SOMATULINE AUTOGEL [Suspect]
     Active Substance: LANREOTIDE ACETATE
     Dosage: 90 MG
     Route: 058
     Dates: start: 20140925, end: 20150115
  2. CORTRIL [Suspect]
     Active Substance: HYDROCORTISONE
     Indication: ADRENAL INSUFFICIENCY
     Route: 048
     Dates: start: 20140422, end: 20160512
  3. CABASER [Suspect]
     Active Substance: CABERGOLINE
     Indication: ACROMEGALY
     Route: 048
     Dates: start: 2013
  4. SOMATULINE AUTOGEL [Suspect]
     Active Substance: LANREOTIDE ACETATE
     Indication: ACROMEGALY
     Dosage: 90 MG
     Route: 058
     Dates: start: 20140605, end: 20140828
  5. SOMATULINE AUTOGEL [Suspect]
     Active Substance: LANREOTIDE ACETATE
     Dosage: 90 MG
     Route: 058
     Dates: start: 20150115, end: 20160512

REACTIONS (18)
  - Depressed level of consciousness [Recovered/Resolved]
  - Portal venous gas [Recovered/Resolved]
  - Feeling abnormal [Unknown]
  - Diarrhoea [Recovered/Resolved]
  - Flatulence [Unknown]
  - Intestinal ischaemia [Unknown]
  - Gastrooesophageal reflux disease [Unknown]
  - Inappropriate schedule of drug administration [Unknown]
  - Metabolic acidosis [Unknown]
  - Diarrhoea [Recovered/Resolved]
  - Barrett^s oesophagus [Unknown]
  - Vomiting [Recovered/Resolved]
  - Ulcer [Unknown]
  - Abdominal pain [Recovered/Resolved]
  - Gastric dilatation [Recovered/Resolved]
  - Hypotension [Recovered/Resolved]
  - Mallory-Weiss syndrome [Unknown]
  - Abdominal pain [Recovered/Resolved]

NARRATIVE: CASE EVENT DATE: 20140606
